FAERS Safety Report 16411545 (Version 1)
Quarter: 2019Q2

REPORT INFORMATION
  Report Type: Spontaneous
  Country: IT (occurrence: IT)
  Receive Date: 20190610
  Receipt Date: 20190610
  Transmission Date: 20190711
  Serious: Yes (Hospitalization)
  Sender: FDA-Public Use
  Company Number: IT-COLLEGIUM PHARMACEUTICAL, INC.-IT-2019COL000179

PATIENT
  Sex: Female

DRUGS (1)
  1. TAPENTADOL EXTENDED RELEASE [Suspect]
     Active Substance: TAPENTADOL
     Indication: MUSCULOSKELETAL PAIN
     Dosage: 100 MG, BID
     Route: 048
     Dates: start: 201812

REACTIONS (3)
  - Syncope [Unknown]
  - Drug interaction [Unknown]
  - Toxicity to various agents [Unknown]
